FAERS Safety Report 7658866-8 (Version None)
Quarter: 2011Q3

REPORT INFORMATION
  Report Type: 
  Country: None (occurrence: None)
  Receive Date: 20110805
  Receipt Date: 20110727
  Transmission Date: 20111222
  Serious: Yes (Hospitalization)
  Sender: FDA-Public Use
  Company Number: CH-PFIZER INC-2011169487

PATIENT
  Age: 84 Year
  Sex: Female

DRUGS (6)
  1. MARCOUMAR [Concomitant]
     Dosage: UNK
     Route: 048
  2. METOPROLOL SUCCINATE [Concomitant]
     Dosage: 12.5 MG, 1X/DAY
     Route: 048
     Dates: end: 20110223
  3. LORAZEPAM [Concomitant]
     Dosage: UNK
  4. PANTOPRAZOLE [Suspect]
     Dosage: 40 MG, 2X/DAY
     Route: 048
  5. EFFEXOR [Suspect]
     Dosage: 75 MG, 1X/DAY
     Route: 048
     Dates: end: 20110223
  6. CO-ENATEC [Concomitant]
     Dosage: UNK

REACTIONS (3)
  - HYPOMAGNESAEMIA [None]
  - ELECTROCARDIOGRAM QT PROLONGED [None]
  - TORSADE DE POINTES [None]
